FAERS Safety Report 24781768 (Version 4)
Quarter: 2025Q1

REPORT INFORMATION
  Report Type: Spontaneous
  Country: CZ (occurrence: CZ)
  Receive Date: 20241227
  Receipt Date: 20250306
  Transmission Date: 20250408
  Serious: Yes (Hospitalization, Other)
  Sender: SANDOZ
  Company Number: CZ-SA-2024SA361168

PATIENT
  Age: 18 Year
  Sex: Female

DRUGS (19)
  1. AMIKACIN [Suspect]
     Active Substance: AMIKACIN
     Indication: Proctalgia
     Route: 065
  2. AVIBACTAM SODIUM\CEFTAZIDIME [Suspect]
     Active Substance: AVIBACTAM SODIUM\CEFTAZIDIME
     Indication: Proctalgia
     Route: 065
  3. CYTARABINE [Suspect]
     Active Substance: CYTARABINE
     Indication: Acute myeloid leukaemia
     Route: 065
     Dates: start: 2024
  4. COLISTIMETHATE SODIUM [Suspect]
     Active Substance: COLISTIMETHATE SODIUM
     Indication: Proctalgia
     Route: 065
  5. CYTARABINE [Suspect]
     Active Substance: CYTARABINE
     Indication: Acute undifferentiated leukaemia
     Route: 065
  6. DAUNORUBICIN [Suspect]
     Active Substance: DAUNORUBICIN
     Indication: Acute myeloid leukaemia
     Route: 065
     Dates: start: 2024
  7. DICLOFENAC [Suspect]
     Active Substance: DICLOFENAC
     Indication: Proctalgia
     Route: 042
  8. FENTANYL [Suspect]
     Active Substance: FENTANYL
     Indication: Proctalgia
     Route: 062
  9. FLUDARABINE [Suspect]
     Active Substance: FLUDARABINE PHOSPHATE
     Indication: Acute myeloid leukaemia
     Dosage: 30 MG/M2, QD
     Route: 065
     Dates: start: 2024
  10. FLUDARABINE [Suspect]
     Active Substance: FLUDARABINE PHOSPHATE
     Indication: Acute undifferentiated leukaemia
  11. IDARUBICIN [Suspect]
     Active Substance: IDARUBICIN
     Indication: Acute myeloid leukaemia
     Route: 065
     Dates: start: 2024
  12. IDARUBICIN [Suspect]
     Active Substance: IDARUBICIN
     Indication: Acute undifferentiated leukaemia
  13. LINEZOLID [Suspect]
     Active Substance: LINEZOLID
     Indication: Proctalgia
     Route: 065
  14. VANCOMYCIN [Suspect]
     Active Substance: VANCOMYCIN
     Indication: Product used for unknown indication
     Route: 065
  15. VENETOCLAX [Suspect]
     Active Substance: VENETOCLAX
     Indication: Acute myeloid leukaemia
     Route: 065
     Dates: start: 2024
  16. VENETOCLAX [Suspect]
     Active Substance: VENETOCLAX
     Indication: Acute undifferentiated leukaemia
  17. HYDROXYUREA [Concomitant]
     Active Substance: HYDROXYUREA
     Indication: Hyperleukocytosis
     Route: 065
  18. PIPERACILLIN AND TAZOBACTAM [Concomitant]
     Active Substance: PIPERACILLIN SODIUM\TAZOBACTAM SODIUM
     Indication: Evidence based treatment
     Route: 065
  19. POSACONAZOLE [Concomitant]
     Active Substance: POSACONAZOLE
     Indication: Systemic mycosis
     Route: 065
     Dates: start: 2024

REACTIONS (19)
  - Neutropenia [Recovered/Resolved]
  - Febrile neutropenia [Recovered/Resolved]
  - Pseudomonas infection [Recovered/Resolved]
  - Pyrexia [Recovered/Resolved]
  - Soft tissue infection [Recovered/Resolved]
  - Skin maceration [Recovered/Resolved]
  - Tissue infiltration [Recovered/Resolved]
  - Proctalgia [Recovered/Resolved]
  - Cellulitis [Recovered/Resolved]
  - Erythema [Recovered/Resolved]
  - Thrombocytopenia [Recovered/Resolved]
  - Nephropathy toxic [Unknown]
  - Toxicity to various agents [Unknown]
  - Ototoxicity [Unknown]
  - Drug ineffective [Unknown]
  - Rhinorrhoea [Unknown]
  - Parainfluenzae virus infection [Unknown]
  - Cough [Unknown]
  - Off label use [Unknown]

NARRATIVE: CASE EVENT DATE: 20240601
